FAERS Safety Report 11063781 (Version 1)
Quarter: 2015Q2

REPORT INFORMATION
  Report Type: Spontaneous
  Country: US (occurrence: US)
  Receive Date: 20150424
  Receipt Date: 20150424
  Transmission Date: 20150821
  Serious: No
  Sender: FDA-Public Use
  Company Number: US-TARO-2014TAR00091

PATIENT
  Age: 59 Year
  Sex: Female
  Weight: 77.98 kg

DRUGS (3)
  1. FLUOROURACIL TOPICAL CREAM USP 5% [Suspect]
     Active Substance: FLUOROURACIL
     Indication: PRECANCEROUS CELLS PRESENT
     Dosage: UNK UNK, 2X/DAY
     Route: 061
     Dates: start: 20140611, end: 20140622
  2. MULTIVITAMIN [Concomitant]
     Active Substance: VITAMINS
  3. CALCIUM [Concomitant]
     Active Substance: CALCIUM

REACTIONS (8)
  - Application site erythema [Not Recovered/Not Resolved]
  - Application site pain [Recovered/Resolved]
  - Hypersensitivity [Recovering/Resolving]
  - Wound secretion [Recovered/Resolved]
  - Scab [Not Recovered/Not Resolved]
  - Insomnia [Recovered/Resolved]
  - Pain [Recovering/Resolving]
  - Application site paraesthesia [Recovered/Resolved]

NARRATIVE: CASE EVENT DATE: 201406
